FAERS Safety Report 8173015-8 (Version None)
Quarter: 2012Q1

REPORT INFORMATION
  Report Type: 
  Country: None (occurrence: None)
  Receive Date: 20120229
  Receipt Date: 20120220
  Transmission Date: 20120608
  Serious: Yes (Hospitalization, Other)
  Sender: FDA-Public Use
  Company Number: US-BAYER-2011-027504

PATIENT
  Age: 44 Year
  Sex: Female
  Weight: 68.027 kg

DRUGS (2)
  1. THYROID TAB [Concomitant]
     Dosage: UNK
     Dates: start: 19980101
  2. YASMIN [Suspect]
     Dosage: UNK
     Route: 048
     Dates: start: 20020101, end: 20070101

REACTIONS (8)
  - GENERAL PHYSICAL HEALTH DETERIORATION [None]
  - PAIN [None]
  - VARICOSE VEIN OPERATION [None]
  - ANHEDONIA [None]
  - DEEP VEIN THROMBOSIS [None]
  - INJURY [None]
  - ANXIETY [None]
  - EMOTIONAL DISTRESS [None]
